FAERS Safety Report 13455666 (Version 1)
Quarter: 2017Q2

REPORT INFORMATION
  Report Type: Spontaneous
  Country: US (occurrence: US)
  Receive Date: 20170418
  Receipt Date: 20170418
  Transmission Date: 20170830
  Serious: Yes (Hospitalization, Disabling)
  Sender: FDA-Public Use
  Company Number: None

PATIENT
  Age: 63 Year
  Sex: Male
  Weight: 135 kg

DRUGS (1)
  1. LOPRESSOR [Suspect]
     Active Substance: METOPROLOL TARTRATE
     Indication: CARDIAC FAILURE CONGESTIVE
     Route: 067
     Dates: start: 20131218, end: 20140418

REACTIONS (4)
  - Hallucination [None]
  - Fear [None]
  - Delirium [None]
  - Heart rate increased [None]

NARRATIVE: CASE EVENT DATE: 20131218
